FAERS Safety Report 8000253-7 (Version None)
Quarter: 2011Q4

REPORT INFORMATION
  Report Type: 
  Country: None (occurrence: None)
  Receive Date: 20111123
  Receipt Date: 20111019
  Transmission Date: 20120403
  Serious: Yes (Other)
  Sender: FDA-Public Use
  Company Number: 337771

PATIENT
  Age: 73 Year
  Sex: Female
  Weight: 62.1 kg

DRUGS (1)
  1. VICTOZA [Suspect]
     Indication: TYPE 2 DIABETES MELLITUS
     Dosage: 1.8 MG, QD, SUBCUTANEOUS, 0.6 MG, QD , SUBCUTANEOUS
     Route: 057
     Dates: start: 20110926, end: 20111017

REACTIONS (3)
  - URINARY TRACT INFECTION [None]
  - PANCREATITIS [None]
  - COUGH [None]
